FAERS Safety Report 13066889 (Version 1)
Quarter: 2016Q4

REPORT INFORMATION
  Report Type: Spontaneous
  Country: FR (occurrence: FR)
  Receive Date: 20161227
  Receipt Date: 20161227
  Transmission Date: 20170207
  Serious: Yes (Hospitalization)
  Sender: FDA-Public Use
  Company Number: FR-ALLERGAN-1682353US

PATIENT
  Age: 53 Year
  Sex: Female

DRUGS (3)
  1. STILNOX [Suspect]
     Active Substance: ZOLPIDEM TARTRATE
     Indication: INSOMNIA
     Dosage: 12 DF, SINGLE
     Route: 048
     Dates: start: 20150105
  2. ESCITALOPRAM OXALATE - BP [Suspect]
     Active Substance: ESCITALOPRAM OXALATE
     Indication: PRODUCT USED FOR UNKNOWN INDICATION
     Dosage: 28 DF, SINGLE
     Route: 048
     Dates: start: 20150105
  3. RALOXIFENE BASE [Suspect]
     Active Substance: RALOXIFENE
     Indication: HORMONE REPLACEMENT THERAPY
     Dosage: 60 DF, SINGLE
     Route: 048
     Dates: start: 20150105

REACTIONS (6)
  - Coma scale abnormal [None]
  - Toxicity to various agents [Recovered/Resolved]
  - PCO2 increased [None]
  - Hypokalaemia [None]
  - Mydriasis [None]
  - Alcohol poisoning [None]

NARRATIVE: CASE EVENT DATE: 20150105
